FAERS Safety Report 7519545-0 (Version None)
Quarter: 2011Q2

REPORT INFORMATION
  Report Type: 
  Country: None (occurrence: None)
  Receive Date: 20110602
  Receipt Date: 20110526
  Transmission Date: 20111010
  Serious: Yes (Death)
  Sender: FDA-Public Use
  Company Number: FR-PFIZER INC-FR-WYE-G05802510

PATIENT
  Age: 54 Year
  Sex: Male
  Weight: 75 kg

DRUGS (3)
  1. TIGECYCLINE [Suspect]
     Indication: PERITONEAL INFECTION
     Dosage: 50 MG, 2X/DAY
     Route: 042
     Dates: start: 20100319
  2. NEXIUM [Concomitant]
     Dosage: UNK
     Route: 042
     Dates: start: 20100312
  3. MORPHINE [Concomitant]
     Dosage: UNK
     Route: 042
     Dates: start: 20100312

REACTIONS (1)
  - CARDIAC ARREST [None]
